FAERS Safety Report 15129937 (Version 1)
Quarter: 2018Q3

REPORT INFORMATION
  Report Type: Spontaneous
  Country: US (occurrence: US)
  Receive Date: 20180615
  Receipt Date: 20180615
  Transmission Date: 20181010
  Serious: Yes (Other)
  Sender: FDA-Public Use
  Company Number: None

PATIENT
  Age: 47 Year
  Sex: Female
  Weight: 162.1 kg

DRUGS (1)
  1. VENOFER [Suspect]
     Active Substance: IRON SUCROSE
     Indication: IRON DEFICIENCY ANAEMIA
     Route: 041
     Dates: start: 20180420, end: 20180420

REACTIONS (3)
  - Infusion related reaction [None]
  - Sensation of foreign body [None]
  - Hypersensitivity [None]

NARRATIVE: CASE EVENT DATE: 20180420
